FAERS Safety Report 23860756 (Version 1)
Quarter: 2024Q2

REPORT INFORMATION
  Report Type: Spontaneous
  Country: US (occurrence: US)
  Receive Date: 20240516
  Receipt Date: 20240516
  Transmission Date: 20240716
  Serious: Yes (Other)
  Sender: FDA-Public Use
  Company Number: US-HORIZON THERAPEUTICS-HZN-2024-005397

PATIENT

DRUGS (16)
  1. TEPEZZA [Suspect]
     Active Substance: TEPROTUMUMAB-TRBW
     Indication: Endocrine ophthalmopathy
     Dosage: 612.35 MG, SINGLE (FIRST INFUSION)
     Route: 042
     Dates: start: 20210612, end: 20210612
  2. TEPEZZA [Suspect]
     Active Substance: TEPROTUMUMAB-TRBW
     Indication: Graves^ disease
     Dosage: 1224.7 MG, EVERY 3 WEEKS (SECOND INFUSION)
     Route: 042
     Dates: start: 20210703, end: 20210703
  3. TEPEZZA [Suspect]
     Active Substance: TEPROTUMUMAB-TRBW
     Dosage: 1220 MG, EVERY 3 WEEKS (THIRD INFUSION)
     Route: 042
     Dates: start: 20210724, end: 20210724
  4. TEPEZZA [Suspect]
     Active Substance: TEPROTUMUMAB-TRBW
     Dosage: 1220 MG, EVERY 3 WEEKS (FOURTH INFUSION)
     Route: 042
     Dates: start: 20210821, end: 20210821
  5. TEPEZZA [Suspect]
     Active Substance: TEPROTUMUMAB-TRBW
     Dosage: 1240 MG, EVERY 3 WEEKS (FIFTH INFUSION)
     Route: 042
     Dates: start: 20210918, end: 20210918
  6. TEPEZZA [Suspect]
     Active Substance: TEPROTUMUMAB-TRBW
     Dosage: 1240 MG, EVERY 3 WEEKS (SIXTH INFUSION)
     Route: 042
     Dates: start: 20211009, end: 20211009
  7. TEPEZZA [Suspect]
     Active Substance: TEPROTUMUMAB-TRBW
     Dosage: 1240 MG, EVERY 3 WEEKS (SEVENTH INFUSION)
     Route: 042
     Dates: start: 20211030, end: 20211030
  8. TEPEZZA [Suspect]
     Active Substance: TEPROTUMUMAB-TRBW
     Dosage: 1240 MG, EVERY 3 WEEKS (EIGHTH INFUSION)
     Route: 042
     Dates: start: 20211120, end: 20211120
  9. FLONASE [Concomitant]
     Active Substance: FLUTICASONE PROPIONATE
  10. SYNTHROID [Concomitant]
     Active Substance: LEVOTHYROXINE SODIUM
     Route: 048
  11. Genadur [Concomitant]
     Dosage: LIQUID AS DIRECTED EXTERNALLY ONCE A DAY
     Dates: end: 20220929
  12. MELOXICAM [Concomitant]
     Active Substance: MELOXICAM
     Dosage: 15 MG, QD
     Route: 048
  13. CYCLOBENZAPRINE HYDROCHLORIDE [Concomitant]
     Active Substance: CYCLOBENZAPRINE HYDROCHLORIDE
     Dosage: 10 MG, TABLET AT BEDTIME AS NEEDED
  14. ERYTHROMYCIN [Concomitant]
     Active Substance: ERYTHROMYCIN
  15. TOBRADEX [Concomitant]
     Active Substance: DEXAMETHASONE\TOBRAMYCIN
     Dosage: INSTILL ONE DROP INTO BOTH EYES
  16. MEDROL [Concomitant]
     Active Substance: METHYLPREDNISOLONE
     Route: 048

REACTIONS (37)
  - Brow ptosis [Unknown]
  - Deafness neurosensory [Unknown]
  - Oropharyngeal pain [Unknown]
  - Pain [Unknown]
  - Sinus congestion [Unknown]
  - Nasal congestion [Unknown]
  - Eustachian tube disorder [Unknown]
  - Ear congestion [Unknown]
  - Ear discomfort [Unknown]
  - Ear pain [Unknown]
  - Lip swelling [Unknown]
  - Muscular weakness [Unknown]
  - Herpes simplex [Unknown]
  - Vomiting [Unknown]
  - Pharyngitis [Unknown]
  - Osteoarthritis [Unknown]
  - Anaemia [Unknown]
  - Upper-airway cough syndrome [Unknown]
  - Abdominal pain [Unknown]
  - Abdominal distension [Unknown]
  - Nasal turbinate hypertrophy [Unknown]
  - Constipation [Unknown]
  - Abdominal tenderness [Unknown]
  - Bladder pain [Unknown]
  - Cystitis interstitial [Unknown]
  - Hepatic cyst [Unknown]
  - Umbilical hernia [Unknown]
  - Abdominal discomfort [Unknown]
  - Oedema [Unknown]
  - Peripheral swelling [Unknown]
  - Left atrial enlargement [Unknown]
  - Pain in extremity [Unknown]
  - Weight decreased [Unknown]
  - Muscle spasms [Unknown]
  - Headache [Unknown]
  - Fatigue [Unknown]
  - Nausea [Unknown]

NARRATIVE: CASE EVENT DATE: 20210701
